FAERS Safety Report 8997221 (Version 1)
Quarter: 2013Q1

REPORT INFORMATION
  Report Type: Spontaneous
  Country: DE (occurrence: DE)
  Receive Date: 20130104
  Receipt Date: 20130104
  Transmission Date: 20140127
  Serious: Yes (Other)
  Sender: FDA-Public Use
  Company Number: DE-UCBSA-074169

PATIENT
  Age: 28 Year
  Sex: Female
  Weight: 69 kg

DRUGS (5)
  1. VIMPAT [Suspect]
     Indication: EPILEPSY
     Route: 048
  2. FINLEPSIN [Suspect]
     Indication: EPILEPSY
     Route: 048
  3. FINLEPSIN [Suspect]
     Indication: EPILEPSY
     Dosage: UNKNOWN DOSE
  4. CELESTAN [Concomitant]
     Indication: MATERNAL THERAPY TO ENHANCE FOETAL LUNG MATURITY
     Route: 030
     Dates: start: 20120113, end: 20120113
  5. FEMIBION [Concomitant]
     Indication: PROPHYLAXIS OF NEURAL TUBE DEFECT
     Route: 048
     Dates: start: 201108, end: 201201

REACTIONS (3)
  - Premature delivery [Unknown]
  - Pregnancy [Recovered/Resolved]
  - Exposure during pregnancy [None]
